FAERS Safety Report 13647063 (Version 1)
Quarter: 2017Q2

REPORT INFORMATION
  Report Type: Spontaneous
  Country: US (occurrence: US)
  Receive Date: 20170613
  Receipt Date: 20170613
  Transmission Date: 20170830
  Serious: Yes (Disabling)
  Sender: FDA-Public Use
  Company Number: None

PATIENT
  Age: 75 Year
  Sex: Female
  Weight: 51.3 kg

DRUGS (1)
  1. CALCIUM INFUSION [Suspect]
     Active Substance: CALCIUM
     Indication: BLOOD CALCIUM DECREASED
     Dosage: ?          QUANTITY:1 INJECTION(S);OTHER FREQUENCY:ONE INFUSION;?
     Route: 058
     Dates: start: 20161016, end: 20161016

REACTIONS (5)
  - Hypoaesthesia [None]
  - Vulvovaginal pain [None]
  - Pain in extremity [None]
  - Vulvovaginal hypoaesthesia [None]
  - Pain [None]

NARRATIVE: CASE EVENT DATE: 20161016
